FAERS Safety Report 26170717 (Version 1)
Quarter: 2025Q4

REPORT INFORMATION
  Report Type: Spontaneous
  Country: EU (occurrence: EU)
  Receive Date: 20251217
  Receipt Date: 20251217
  Transmission Date: 20260117
  Serious: Yes (Other)
  Sender: SANDOZ
  Company Number: EU-SANDOZ-SDZ2025PL095061

PATIENT
  Age: 25 Year
  Sex: Female

DRUGS (2)
  1. ADALIMUMAB [Suspect]
     Active Substance: ADALIMUMAB
     Dosage: 2 DOSES
     Route: 065
     Dates: start: 202610
  2. ADALIMUMAB [Suspect]
     Active Substance: ADALIMUMAB
     Indication: Gastrointestinal disorder
     Dosage: UNK
     Route: 058
     Dates: start: 201707, end: 201810

REACTIONS (2)
  - Surgery [Unknown]
  - Drug ineffective [Unknown]
